FAERS Safety Report 6330984-6 (Version None)
Quarter: 2009Q3

REPORT INFORMATION
  Report Type: 
  Country: None (occurrence: None)
  Receive Date: 20090827
  Receipt Date: 20090818
  Transmission Date: 20100115
  Serious: Yes (Other)
  Sender: FDA-Public Use
  Company Number: US-ELI_LILLY_AND_COMPANY-US200906002508

PATIENT
  Sex: Female
  Weight: 79.365 kg

DRUGS (16)
  1. BYETTA [Suspect]
     Indication: TYPE 2 DIABETES MELLITUS
     Dosage: 5 UG, 2/D
     Route: 058
     Dates: start: 20060901
  2. BYETTA [Suspect]
     Dosage: 10 UG, 2/D
     Route: 058
     Dates: end: 20090604
  3. METFORMIN HCL [Concomitant]
     Dosage: 1000 MG, 2/D
  4. METFORMIN HCL [Concomitant]
     Dosage: 500 MG, 2/D
  5. GLIMEPIRIDE [Concomitant]
     Dosage: 2 MG, EACH EVENING
  6. LANTUS [Concomitant]
     Dosage: 12 U, DAILY (1/D)
     Dates: start: 20090201
  7. LANTUS [Concomitant]
     Dosage: 20 U, DAILY (1/D)
  8. ASPIRIN [Concomitant]
     Dosage: 81 MG, DAILY (1/D)
  9. LEVOTHYROXINE [Concomitant]
     Dosage: 50 UG, EACH MORNING
     Dates: end: 20090601
  10. LISINOPRIL [Concomitant]
     Dosage: 20 MG, DAILY (1/D)
  11. PROTONIX [Concomitant]
     Dosage: 40 MG, DAILY (1/D)
  12. EFFEXOR [Concomitant]
     Indication: DEPRESSION
     Dosage: 75 MG, 2/D
  13. SIMVASTATIN [Concomitant]
     Dosage: 80 MG, EACH EVENING
     Dates: end: 20090101
  14. MULTI-VITAMIN [Concomitant]
     Dosage: UNK, DAILY (1/D)
  15. ALLI [Concomitant]
     Dates: end: 20090604
  16. DECADRON [Concomitant]
     Indication: PANCREATIC CARCINOMA
     Dates: start: 20090101

REACTIONS (4)
  - ADENOCARCINOMA PANCREAS [None]
  - BLOOD GLUCOSE INCREASED [None]
  - METASTASES TO LIVER [None]
  - OFF LABEL USE [None]
